FAERS Safety Report 6133476-2 (Version None)
Quarter: 2009Q1

REPORT INFORMATION
  Report Type: 
  Country: None (occurrence: None)
  Receive Date: 20090326
  Receipt Date: 20090323
  Transmission Date: 20090719
  Serious: Yes (Other)
  Sender: FDA-Public Use
  Company Number: MA-ABBOTT-09P-110-0563964-00

PATIENT
  Age: 43 Year
  Sex: Male

DRUGS (1)
  1. WARFARIN SODIUM [Suspect]
     Indication: ANTICOAGULANT THERAPY

REACTIONS (1)
  - COLONIC HAEMATOMA [None]
